FAERS Safety Report 8614259-8 (Version None)
Quarter: 2012Q3

REPORT INFORMATION
  Report Type: 
  Country: None (occurrence: None)
  Receive Date: 20120813
  Receipt Date: 20120813
  Transmission Date: 20120928
  Serious: Yes (Hospitalization)
  Sender: FDA-Public Use
  Company Number: None

PATIENT
  Age: 91 Year
  Sex: Male
  Weight: 80.2 kg

DRUGS (1)
  1. WARFARIN SODIUM [Suspect]
     Indication: ATRIAL FIBRILLATION
     Dosage: 3 MG OTHER PO
     Route: 048
     Dates: start: 20120509, end: 20120607

REACTIONS (3)
  - HAEMATOMA [None]
  - HAEMORRHAGE [None]
  - GAIT DISTURBANCE [None]
